FAERS Safety Report 5169373-9 (Version None)
Quarter: 2006Q4

REPORT INFORMATION
  Report Type: 
  Country: None (occurrence: None)
  Receive Date: 20061201
  Receipt Date: 20061116
  Transmission Date: 20070319
  Serious: Yes (Death)
  Sender: FDA-Public Use
  Company Number: 2006CT000981

PATIENT
  Age: 57 Year
  Sex: Female
  Weight: 91 kg

DRUGS (13)
  1. VENTAVIS [Suspect]
     Indication: PULMONARY HYPERTENSION
     Dosage: 5 U G; 6XD; IH
     Route: 055
     Dates: start: 20050720, end: 20061113
  2. OXYGEN [Concomitant]
  3. VITAMIN CAP [Concomitant]
  4. WARFARIN SODIUM [Concomitant]
  5. PAXIL [Concomitant]
  6. DIGOXIN [Concomitant]
  7. AMIODARONE [Concomitant]
  8. SYNTHROID [Concomitant]
  9. NEXIUM [Concomitant]
  10. ASPIRIN [Concomitant]
  11. ATORVASTATIN [Concomitant]
  12. LASIX [Concomitant]
  13. COZAAR [Concomitant]

REACTIONS (1)
  - CARDIAC ARREST [None]
